FAERS Safety Report 4962816-2 (Version None)
Quarter: 2006Q2

REPORT INFORMATION
  Report Type: 
  Country: None (occurrence: None)
  Receive Date: 20060403
  Receipt Date: 20060403
  Transmission Date: 20061013
  Serious: Yes (Death, Life-Threatening, Hospitalization)
  Sender: FDA-Public Use
  Company Number: None

PATIENT
  Age: 81 Year
  Sex: Male

DRUGS (1)
  1. CELLCEPT [Suspect]
     Indication: PANCREATIC CARCINOMA METASTATIC
     Dosage: 1.5 G PO BID
     Route: 048
     Dates: start: 20051214, end: 20060104

REACTIONS (6)
  - ATRIAL FIBRILLATION [None]
  - CANDIDIASIS [None]
  - CORONARY ARTERY SURGERY [None]
  - HEPATIC NEOPLASM MALIGNANT [None]
  - NAUSEA [None]
  - VOMITING [None]
